FAERS Safety Report 14121921 (Version 1)
Quarter: 2017Q4

REPORT INFORMATION
  Report Type: Spontaneous
  Country: US (occurrence: US)
  Receive Date: 20171024
  Receipt Date: 20171024
  Transmission Date: 20180321
  Serious: Yes (Hospitalization, Other)
  Sender: FDA-Public Use
  Company Number: US-TEVA-2016-01609

PATIENT
  Age: 29 Year
  Sex: Male

DRUGS (1)
  1. URSODEOXYCHOLIC ACID [Suspect]
     Active Substance: URSODIOL
     Indication: TRANSAMINASES INCREASED
     Dosage: 1 DOSAGE FORMS DAILY; 1 DF, SINGLE
     Route: 065

REACTIONS (2)
  - Arrhythmia [Recovered/Resolved]
  - Angioedema [Recovered/Resolved]
